FAERS Safety Report 4394113-0 (Version None)
Quarter: 2004Q3

REPORT INFORMATION
  Report Type: 
  Country: None (occurrence: None)
  Receive Date: 20040705
  Receipt Date: 20040628
  Transmission Date: 20050211
  Serious: Yes (Other)
  Sender: FDA-Public Use
  Company Number: 200310805BCA

PATIENT
  Sex: Female

DRUGS (2)
  1. GAMIMUNE N 10% [Suspect]
     Dosage: 100 G, TOTAL DAILY, INTRAVENOUS; SEE IMAGE
     Route: 042
     Dates: start: 19981214
  2. GAMIMUNE N [Suspect]

REACTIONS (1)
  - HTLV-1 ANTIBODY POSITIVE [None]
